FAERS Safety Report 4493122-0 (Version None)
Quarter: 2004Q4

REPORT INFORMATION
  Report Type: 
  Country: None (occurrence: None)
  Receive Date: 20041104
  Receipt Date: 20041028
  Transmission Date: 20050328
  Serious: Yes (Hospitalization)
  Sender: FDA-Public Use
  Company Number: NL-GLAXOSMITHKLINE-B0350335A

PATIENT

DRUGS (2)
  1. ROSIGLITAZONE MALEATE [Suspect]
     Route: 065
  2. GLICLAZIDE [Concomitant]

REACTIONS (2)
  - HYPOGLYCAEMIA [None]
  - WEIGHT DECREASED [None]
